FAERS Safety Report 16979540 (Version 1)
Quarter: 2019Q4

REPORT INFORMATION
  Report Type: Report from Study
  Country: KR (occurrence: KR)
  Receive Date: 20191031
  Receipt Date: 20191031
  Transmission Date: 20200122
  Serious: Yes (Hospitalization)
  Sender: FDA-Public Use
  Company Number: KR-CELLTRION INC.-2019KR025657

PATIENT

DRUGS (11)
  1. HERZUMA [Suspect]
     Active Substance: TRASTUZUMAB-PKRB
     Indication: HER-2 POSITIVE GASTRIC CANCER
     Dosage: 172 MG
     Route: 042
     Dates: start: 20190409, end: 20190409
  2. HERZUMA [Suspect]
     Active Substance: TRASTUZUMAB-PKRB
     Dosage: UNK EVERY WEEK
     Route: 042
     Dates: start: 20190826
  3. HERZUMA [Suspect]
     Active Substance: TRASTUZUMAB-PKRB
     Dosage: UNK EVERY WEEK
     Route: 042
     Dates: start: 20191002
  4. HERZUMA [Suspect]
     Active Substance: TRASTUZUMAB-PKRB
     Dosage: UNK EVERY WEEK
     Route: 042
     Dates: start: 20190909
  5. HERZUMA [Suspect]
     Active Substance: TRASTUZUMAB-PKRB
     Dosage: UNK EVERY WEEK
     Route: 042
     Dates: start: 20190925
  6. CYRAMZA [Suspect]
     Active Substance: RAMUCIRUMAB
     Indication: HER-2 POSITIVE GASTRIC CANCER
     Dosage: 344 MG
     Route: 042
     Dates: start: 20190409, end: 20190925
  7. HERZUMA [Suspect]
     Active Substance: TRASTUZUMAB-PKRB
     Dosage: UNK EVERY WEEK
     Route: 042
     Dates: start: 20190918
  8. HERZUMA [Suspect]
     Active Substance: TRASTUZUMAB-PKRB
     Dosage: 86 MG
     Route: 042
     Dates: start: 20190422
  9. HERZUMA [Suspect]
     Active Substance: TRASTUZUMAB-PKRB
     Dosage: UNK EVERY WEEK
     Route: 042
     Dates: start: 20190902
  10. GENEXOL [PACLITAXEL] [Suspect]
     Active Substance: PACLITAXEL
     Indication: HER-2 POSITIVE GASTRIC CANCER
     Dosage: 109.6 MG
     Route: 042
     Dates: start: 20190409, end: 20190731
  11. GENEXOL [PACLITAXEL] [Suspect]
     Active Substance: PACLITAXEL
     Dosage: 95.9 MG
     Route: 042
     Dates: start: 20190902, end: 20190909

REACTIONS (2)
  - Product use issue [Unknown]
  - Gastrointestinal anastomotic leak [Not Recovered/Not Resolved]

NARRATIVE: CASE EVENT DATE: 20191010
